FAERS Safety Report 8375515-4 (Version None)
Quarter: 2012Q1

REPORT INFORMATION
  Report Type: 
  Country: None (occurrence: None)
  Receive Date: 20120323
  Receipt Date: 20110509
  Transmission Date: 20120608
  Serious: Yes (Hospitalization, Other)
  Sender: FDA-Public Use
  Company Number: 163-21880-11013063

PATIENT
  Age: 85 Year
  Sex: Female

DRUGS (27)
  1. MAGIC MOUTH WASH (ALL OTHER THERAPEUTIC PRODUCTS) [Concomitant]
  2. AUGMENTIN '125' [Concomitant]
  3. CALCITRATE (CALCIUM) [Concomitant]
  4. PREDNISONE TAB [Concomitant]
  5. ONDANSETRON [Concomitant]
  6. DABIGATRAN (DABIGATRAN) [Concomitant]
  7. CEFATRIZINE (CEFATRIZINE) [Concomitant]
  8. ZYRTEC [Concomitant]
  9. FLAGYL [Concomitant]
  10. OMEPRAZOLE [Concomitant]
  11. RANEXA [Concomitant]
  12. SIMVASTATIN [Concomitant]
  13. POTASSIUM CHLORIDE [Concomitant]
  14. ANTIVERT [Concomitant]
  15. SPIRIVA [Concomitant]
  16. REVLIMID [Suspect]
     Indication: MULTIPLE MYELOMA
     Dosage: 15 MG, DAILY ON DAYS 1-21, Q 28 DAYS, PO
     Route: 048
     Dates: start: 20101201, end: 20101231
  17. PROBIOTIC (LACTOBACILLUS ACIDOPHILUS) (TABLETS) [Concomitant]
  18. PRADAXA (DABIGATRAN ETEXILATE MESILATE) [Concomitant]
  19. ACETAMINOPHEN [Concomitant]
  20. CALCIUM CITRATE PLUS VITAMIN D (CALCIUM CITRATE W/VITAMIN D NOS) [Concomitant]
  21. DIGOXIN [Concomitant]
  22. SYNTHROID [Concomitant]
  23. CETIRIZINE [Concomitant]
  24. LACTOBACILLUS (LACTOBACILLUS ACIDOPHILUS) [Concomitant]
  25. DEXAMETHASONE [Concomitant]
  26. ADVAIR DISKUS (SERETIDE MITE) (INHALANT) [Concomitant]
  27. ASPIRIN [Concomitant]

REACTIONS (6)
  - THROMBOCYTOPENIA [None]
  - PERFORMANCE STATUS DECREASED [None]
  - DIVERTICULITIS [None]
  - CLOSTRIDIUM DIFFICILE COLITIS [None]
  - ANAEMIA [None]
  - FATIGUE [None]
